FAERS Safety Report 7563630-4 (Version None)
Quarter: 2011Q2

REPORT INFORMATION
  Report Type: 
  Country: None (occurrence: None)
  Receive Date: 20110622
  Receipt Date: 20110613
  Transmission Date: 20111010
  Serious: Yes (Death)
  Sender: FDA-Public Use
  Company Number: US-PURDUE-USA-2011-0068273

PATIENT
  Age: 81 Year
  Sex: Female

DRUGS (1)
  1. BUTRANS [Suspect]
     Indication: PRODUCT USED FOR UNKNOWN INDICATION
     Dosage: 5 MCG, Q1H
     Route: 062
     Dates: start: 20110425

REACTIONS (10)
  - CARDIAC FAILURE CONGESTIVE [None]
  - ACUTE RESPIRATORY FAILURE [None]
  - SEPSIS [None]
  - AORTIC STENOSIS [None]
  - ACUTE MYOCARDIAL INFARCTION [None]
  - ACIDOSIS [None]
  - PNEUMONIA [None]
  - HYPOTENSION [None]
  - URINE OUTPUT DECREASED [None]
  - HYPOXIA [None]
